FAERS Safety Report 4957402-4 (Version None)
Quarter: 2006Q1

REPORT INFORMATION
  Report Type: 
  Country: None (occurrence: None)
  Receive Date: 20060327
  Receipt Date: 20060317
  Transmission Date: 20060701
  Serious: Yes (Other)
  Sender: FDA-Public Use
  Company Number: 223133

PATIENT
  Age: 53 Year
  Sex: Female
  Weight: 79.8 kg

DRUGS (2)
  1. RAPTIVA [Suspect]
     Indication: PSORIASIS
     Dosage: 80 MG
     Dates: start: 20050914, end: 20060216
  2. PREDNISONE [Concomitant]

REACTIONS (8)
  - ABDOMINAL PAIN [None]
  - DIAPHRAGMATIC DISORDER [None]
  - FACIAL PALSY [None]
  - LYMPHADENOPATHY [None]
  - MYALGIA [None]
  - PAIN [None]
  - SINUSITIS [None]
  - UPPER RESPIRATORY TRACT INFECTION [None]
